FAERS Safety Report 23189446 (Version 2)
Quarter: 2023Q4

REPORT INFORMATION
  Report Type: Report from Study
  Country: CA (occurrence: CA)
  Receive Date: 20231116
  Receipt Date: 20231222
  Transmission Date: 20240109
  Serious: Yes (Death)
  Sender: FDA-Public Use
  Company Number: CA-ABBVIE-5495586

PATIENT
  Age: 69 Year
  Sex: Male

DRUGS (3)
  1. VENCLEXTA [Suspect]
     Active Substance: VENETOCLAX
     Indication: Mantle cell lymphoma refractory
     Dosage: FORM STRENGTH: 100MG
     Route: 048
     Dates: start: 20210315, end: 20210319
  2. VENCLEXTA [Suspect]
     Active Substance: VENETOCLAX
     Indication: Mantle cell lymphoma refractory
     Dosage: LAST ADMIN DATE MAR 2021
     Route: 048
     Dates: start: 20210305
  3. VENCLEXTA [Suspect]
     Active Substance: VENETOCLAX
     Indication: Mantle cell lymphoma refractory
     Dosage: LAST ADMIN DATE MAR 2021
     Route: 048
     Dates: start: 20210310

REACTIONS (2)
  - Mantle cell lymphoma refractory [Fatal]
  - Off label use [Unknown]

NARRATIVE: CASE EVENT DATE: 20210301
